FAERS Safety Report 20670168 (Version 8)
Quarter: 2022Q2

REPORT INFORMATION
  Report Type: Other
  Country: MX (occurrence: None)
  Receive Date: 20220404
  Receipt Date: 20220617
  Transmission Date: 20220721
  Serious: Yes (Hospitalization, Disabling, Other)
  Sender: FDA-Public Use
  Company Number: MX-ROCHE-3067000

PATIENT
  Age: 70 Year
  Sex: Female
  Weight: 53 kg

DRUGS (11)
  1. TOCILIZUMAB [Suspect]
     Active Substance: TOCILIZUMAB
     Indication: Rheumatoid arthritis
     Dosage: TOCILIZUMAB PRE-FILLED SYRINGES 162 MG/0.9 ML
     Route: 058
     Dates: start: 20200321, end: 202012
  2. TOCILIZUMAB [Suspect]
     Active Substance: TOCILIZUMAB
     Dosage: TOCILIZUMAB PRE-FILLED SYRINGES 162 MG/0.9 ML
     Route: 058
     Dates: start: 202012, end: 20220123
  3. TOCILIZUMAB [Suspect]
     Active Substance: TOCILIZUMAB
     Dosage: TOCILIZUMAB PRE-FILLED SYRINGES 162 MG/0.9 ML
     Route: 058
     Dates: start: 20220405
  4. TOCILIZUMAB [Suspect]
     Active Substance: TOCILIZUMAB
     Route: 058
  5. ARAVA [Concomitant]
     Active Substance: LEFLUNOMIDE
  6. LEVOTHYROXINE SODIUM [Concomitant]
     Active Substance: LEVOTHYROXINE SODIUM
  7. PLAVIX [Concomitant]
     Active Substance: CLOPIDOGREL BISULFATE
  8. LIPITOR [Concomitant]
     Active Substance: ATORVASTATIN CALCIUM
  9. FERRANINA FOL [Concomitant]
  10. DEXLANSOPRAZOLE [Concomitant]
     Active Substance: DEXLANSOPRAZOLE
  11. PULMICORT TURBUHALER [Concomitant]
     Active Substance: BUDESONIDE

REACTIONS (16)
  - Myocardial infarction [Recovered/Resolved]
  - White blood cell count increased [Recovered/Resolved]
  - Cerebrovascular accident [Recovered/Resolved]
  - Speech disorder [Not Recovered/Not Resolved]
  - Intentional overdose [Unknown]
  - Memory impairment [Not Recovered/Not Resolved]
  - Fatigue [Not Recovered/Not Resolved]
  - Somnolence [Not Recovered/Not Resolved]
  - Urinary tract infection [Recovered/Resolved]
  - Ill-defined disorder [Not Recovered/Not Resolved]
  - Off label use [Unknown]
  - Off label use [Unknown]
  - Dysarthria [Not Recovered/Not Resolved]
  - Gait inability [Recovered/Resolved]
  - Gait disturbance [Recovering/Resolving]
  - Learning disorder [Recovered/Resolved]

NARRATIVE: CASE EVENT DATE: 20220201
